FAERS Safety Report 5017161-6 (Version None)
Quarter: 2006Q2

REPORT INFORMATION
  Report Type: 
  Country: None (occurrence: None)
  Receive Date: 20060525
  Receipt Date: 20060504
  Transmission Date: 20061013
  Serious: Yes (Other)
  Sender: FDA-Public Use
  Company Number: US200605000978

PATIENT
  Age: 49 Year
  Sex: Female

DRUGS (9)
  1. ZYPREXA [Suspect]
     Indication: SCHIZOAFFECTIVE DISORDER
     Dosage: 20 MG,
     Dates: start: 20000201
  2. ADVAIR (FUTICASONE PROPIONATE, SALMETEROL XINAFOATE) [Concomitant]
  3. TOPAMAX   /AUS/ (TOPIRAMATE) [Concomitant]
  4. KEPPRA  /USA/(LEVETIRACETAM) [Concomitant]
  5. ABILIFY [Concomitant]
  6. DETROL [Concomitant]
  7. PRILOSEC [Concomitant]
  8. COLACE (DOCUSATE SODIUM) [Concomitant]
  9. MELATONIN (MELATONIN) [Concomitant]

REACTIONS (4)
  - MENTAL DISORDER [None]
  - PANCREATIC CYST [None]
  - WEIGHT DECREASED [None]
  - WEIGHT INCREASED [None]
